FAERS Safety Report 9231258 (Version 1)
Quarter: 2013Q1

REPORT INFORMATION
  Report Type: Spontaneous
  Country: US (occurrence: None)
  Receive Date: 20121031
  Receipt Date: 20121031
  Transmission Date: 20140127
  Serious: No
  Sender: FDA-Public Use
  Company Number: PHEH2012US015916

PATIENT
  Age: 30 Year
  Sex: Female

DRUGS (8)
  1. GILENYA [Suspect]
     Indication: MULTIPLE SCLEROSIS
     Route: 048
     Dates: start: 201101
  2. NEUROTRONIN (GABAPENTIN) [Concomitant]
  3. ADVAIR, (FLUTICASONE PROPIONATE) [Concomitant]
  4. QUINAPRIL (QUINAPRIL) [Concomitant]
  5. ALBUTEROL (SALBUTAMOL) [Concomitant]
  6. DECUSATE SODIUM [Concomitant]
  7. HYDROCHLORTHIAZID (HYDROCHLOROTHIAZIDE) [Concomitant]
  8. FLEXERIL (CYCLOBENZAPRINE HYDROCHLORIDE) [Concomitant]

REACTIONS (1)
  - Hypotension [None]
